FAERS Safety Report 13820454 (Version 1)
Quarter: 2017Q3

REPORT INFORMATION
  Report Type: Report from Study
  Country: GB (occurrence: GB)
  Receive Date: 20170801
  Receipt Date: 20170801
  Transmission Date: 20171127
  Serious: Yes (Death, Hospitalization)
  Sender: FDA-Public Use
  Company Number: GB-ROCHE-1970352

PATIENT
  Age: 77 Year
  Sex: Female

DRUGS (17)
  1. MORPHINE SULPHATE [Concomitant]
     Active Substance: MORPHINE SULFATE
  2. LAXIDO [Concomitant]
     Active Substance: POLYETHYLENE GLYCOL 3350\POTASSIUM CHLORIDE\SODIUM BICARBONATE\SODIUM CHLORIDE
  3. AMITRIPTYLINE [Concomitant]
     Active Substance: AMITRIPTYLINE
  4. RAMIPRIL. [Concomitant]
     Active Substance: RAMIPRIL
  5. FUROSEMIDE. [Concomitant]
     Active Substance: FUROSEMIDE
  6. METHOTREXATE. [Concomitant]
     Active Substance: METHOTREXATE
     Indication: RHEUMATOID ARTHRITIS
  7. PARACETAMOL [Concomitant]
     Active Substance: ACETAMINOPHEN
  8. ORAMORPH [Concomitant]
     Active Substance: MORPHINE SULFATE
  9. FOLIC ACID. [Concomitant]
     Active Substance: FOLIC ACID
  10. TROSPIUM [Concomitant]
     Active Substance: TROSPIUM
  11. RITUXIMAB. [Suspect]
     Active Substance: RITUXIMAB
     Indication: RHEUMATOID ARTHRITIS
     Route: 042
     Dates: start: 20150113, end: 20160202
  12. ADCAL D3 [Concomitant]
     Active Substance: CALCIUM CARBONATE\CHOLECALCIFEROL
  13. ASPIRIN. [Concomitant]
     Active Substance: ASPIRIN
  14. METHOTREXATE. [Concomitant]
     Active Substance: METHOTREXATE
  15. PEPTAC (CALCIUM CARBONATE/SODIUM ALGINATE/SODIUM BICARBONATE) [Concomitant]
  16. SIMVASTATIN. [Concomitant]
     Active Substance: SIMVASTATIN
  17. BISOPROLOL [Concomitant]
     Active Substance: BISOPROLOL

REACTIONS (2)
  - Septic necrosis [Fatal]
  - Death [Fatal]

NARRATIVE: CASE EVENT DATE: 20170112
